FAERS Safety Report 25376206 (Version 1)
Quarter: 2025Q2

REPORT INFORMATION
  Report Type: Spontaneous
  Country: DE (occurrence: DE)
  Receive Date: 20250529
  Receipt Date: 20250529
  Transmission Date: 20250716
  Serious: Yes (Other)
  Sender: BIOMARIN
  Company Number: DE-BIOMARINAP-DE-2025-165918

PATIENT

DRUGS (2)
  1. BRINEURA [Suspect]
     Active Substance: CERLIPONASE ALFA
     Indication: Neuronal ceroid lipofuscinosis
  2. BRINEURA [Suspect]
     Active Substance: CERLIPONASE ALFA
     Route: 020

REACTIONS (4)
  - Retinal vascular occlusion [Unknown]
  - Visual acuity reduced [Unknown]
  - Eye movement disorder [Unknown]
  - Off label use [Unknown]
